FAERS Safety Report 4415261-2 (Version None)
Quarter: 2004Q3

REPORT INFORMATION
  Report Type: 
  Country: None (occurrence: None)
  Receive Date: 20040804
  Receipt Date: 20040729
  Transmission Date: 20050211
  Serious: Yes (Other)
  Sender: FDA-Public Use
  Company Number: PHEH2004US08219

PATIENT
  Age: 53 Year
  Sex: Female

DRUGS (3)
  1. ZELNORM [Suspect]
     Indication: IRRITABLE BOWEL SYNDROME
     Dosage: 6 MG, QD
     Route: 048
     Dates: start: 20040401, end: 20040701
  2. ZYRTEC [Concomitant]
     Indication: HYPERSENSITIVITY
  3. HERBAL PREPARATION [Concomitant]
     Indication: MENOPAUSE

REACTIONS (4)
  - ARRHYTHMIA [None]
  - CARDIAC VALVE DISEASE [None]
  - EXTRASYSTOLES [None]
  - PALPITATIONS [None]
